FAERS Safety Report 11770703 (Version 1)
Quarter: 2015Q4

REPORT INFORMATION
  Report Type: Spontaneous
  Country: IT (occurrence: IT)
  Receive Date: 20151123
  Receipt Date: 20151123
  Transmission Date: 20160304
  Serious: Yes (Hospitalization)
  Sender: FDA-Public Use
  Company Number: IT-ABBVIE-15P-083-1506636-00

PATIENT
  Age: 46 Year
  Sex: Male

DRUGS (3)
  1. DELORAZEPAM [Suspect]
     Active Substance: DELORAZEPAM
     Indication: DRUG ABUSE
     Route: 048
     Dates: start: 20151029, end: 20151029
  2. DEPAKINE CHRONO [Suspect]
     Active Substance: VALPROATE SODIUM
     Indication: DRUG ABUSE
     Route: 048
     Dates: start: 20151029, end: 20151029
  3. ARIPIPRAZOLE. [Suspect]
     Active Substance: ARIPIPRAZOLE
     Indication: DRUG ABUSE
     Route: 048
     Dates: start: 20151029, end: 20151029

REACTIONS (3)
  - Intentional self-injury [Unknown]
  - Sopor [Unknown]
  - Confusional state [Unknown]

NARRATIVE: CASE EVENT DATE: 20151029
